FAERS Safety Report 5797157-7 (Version None)
Quarter: 2008Q3

REPORT INFORMATION
  Report Type: 
  Country: None (occurrence: None)
  Receive Date: 20080701
  Receipt Date: 20080626
  Transmission Date: 20090109
  Serious: Yes (Congenital Anomaly)
  Sender: FDA-Public Use
  Company Number: US-GILEAD-2008-0015687

PATIENT
  Sex: Male
  Weight: 2.061 kg

DRUGS (6)
  1. TRUVADA [Suspect]
     Indication: DRUG EXPOSURE DURING PREGNANCY
     Route: 064
     Dates: start: 20070917, end: 20080207
  2. TRUVADA [Suspect]
     Route: 064
  3. REYATAZ [Concomitant]
     Indication: DRUG EXPOSURE DURING PREGNANCY
     Route: 064
     Dates: start: 20070917, end: 20080207
  4. REYATAZ [Concomitant]
     Route: 064
  5. RITONAVIR [Concomitant]
     Indication: DRUG EXPOSURE DURING PREGNANCY
     Route: 064
     Dates: start: 20070917, end: 20080207
  6. RITONAVIR [Concomitant]
     Route: 064

REACTIONS (2)
  - CARDIAC MURMUR [None]
  - PULMONARY ARTERY STENOSIS CONGENITAL [None]
